FAERS Safety Report 6357324-0 (Version None)
Quarter: 2009Q3

REPORT INFORMATION
  Report Type: 
  Country: None (occurrence: None)
  Receive Date: 20090916
  Receipt Date: 20080206
  Transmission Date: 20100115
  Serious: Yes (Other)
  Sender: FDA-Public Use
  Company Number: US-ASTRAZENECA-2007UW05971

PATIENT
  Age: 48 Year
  Sex: Female
  Weight: 83.9 kg

DRUGS (14)
  1. SEROQUEL [Suspect]
     Indication: BIPOLAR DISORDER
     Route: 048
     Dates: start: 19970427, end: 20070206
  2. SEROQUEL [Suspect]
     Route: 048
     Dates: start: 20050510
  3. ZYPREXA [Concomitant]
     Dates: start: 19950101, end: 19970101
  4. RISPERDAL [Concomitant]
     Dates: start: 19940101, end: 19940101
  5. ASPIRIN [Concomitant]
     Dates: start: 20060316
  6. PHENERGAN [Concomitant]
     Dates: start: 20060316
  7. CLONAZEPAM [Concomitant]
     Dates: start: 20050510
  8. TEMAZEPAM [Concomitant]
     Dates: start: 20060316
  9. CYMBALTA [Concomitant]
     Dates: start: 20060316
  10. LYRICA [Concomitant]
     Dates: start: 20060316
  11. THEOPHYLLINE [Concomitant]
     Dates: start: 20060316
  12. METHOCARBAMOL [Concomitant]
     Dates: start: 20060316
  13. CELEBREX [Concomitant]
     Dates: start: 20060316
  14. NEURONTIN [Concomitant]
     Dates: start: 20050101

REACTIONS (3)
  - DIABETES MELLITUS [None]
  - NEUROPATHY PERIPHERAL [None]
  - TYPE 2 DIABETES MELLITUS [None]
